FAERS Safety Report 9538382 (Version 1)
Quarter: 2013Q3

REPORT INFORMATION
  Report Type: Spontaneous
  Country: US (occurrence: US)
  Receive Date: 20130920
  Receipt Date: 20130920
  Transmission Date: 20140515
  Serious: No
  Sender: FDA-Public Use
  Company Number: US-PFIZER INC-2013270408

PATIENT
  Age: 54 Year
  Sex: Female

DRUGS (6)
  1. GABAPENTIN [Suspect]
     Dosage: UNK
  2. ZOMIG [Suspect]
     Dosage: UNK
  3. MIGRANAL [Suspect]
     Dosage: UNK
  4. DEPAKOTE [Suspect]
     Dosage: UNK
  5. NUBAIN [Suspect]
     Dosage: UNK
  6. ALLEGRA [Suspect]
     Dosage: UNK

REACTIONS (1)
  - Drug hypersensitivity [Unknown]
